FAERS Safety Report 19659020 (Version 2)
Quarter: 2021Q3

REPORT INFORMATION
  Report Type: Spontaneous
  Country: AT (occurrence: AT)
  Receive Date: 20210805
  Receipt Date: 20210812
  Transmission Date: 20211014
  Serious: Yes (Hospitalization)
  Sender: FDA-Public Use
  Company Number: AT-TEVA-2021-AT-1938139

PATIENT
  Age: 45 Year
  Sex: Male

DRUGS (9)
  1. LISINOPRIL. [Suspect]
     Active Substance: LISINOPRIL
     Indication: HYPERTENSION
     Route: 065
  2. RISPERIDONE. [Suspect]
     Active Substance: RISPERIDONE
     Indication: SCHIZOPHRENIA
     Dosage: 5 MILLIGRAM DAILY;
     Route: 048
  3. LORAZEPAM. [Concomitant]
     Active Substance: LORAZEPAM
     Indication: SLEEP DISORDER
     Dosage: ON DAY 3?8 OF HOSPITALISATION
     Route: 065
  4. PROTHIPENDYL [Suspect]
     Active Substance: PROTHIPENDYL
     Indication: SLEEP DISORDER
     Dosage: ON DAY 8 OF HOSPITALISATION
     Route: 065
  5. HYDROCHLOROTHIAZIDE. [Suspect]
     Active Substance: HYDROCHLOROTHIAZIDE
     Indication: HYPERTENSION
     Route: 065
  6. LORAZEPAM. [Concomitant]
     Active Substance: LORAZEPAM
     Indication: SLEEP DISORDER
     Dosage: ON DAY 9 OF HOSPITALISATION
     Route: 065
  7. PALIPERIDONE PALMITATE [Interacting]
     Active Substance: PALIPERIDONE PALMITATE
     Indication: SCHIZOPHRENIA
     Route: 065
  8. CARBAMAZEPINE. [Interacting]
     Active Substance: CARBAMAZEPINE
     Indication: DRUG THERAPY
     Route: 065
  9. PROTHIPENDYL [Suspect]
     Active Substance: PROTHIPENDYL
     Indication: SLEEP DISORDER
     Dosage: FROM DAY 10 OF HOSPITALISATION
     Route: 065

REACTIONS (5)
  - Rebound effect [Unknown]
  - Rhabdomyolysis [Recovered/Resolved]
  - Drug level decreased [Unknown]
  - Schizophrenia [Recovering/Resolving]
  - Drug interaction [Unknown]
